FAERS Safety Report 4552213-6 (Version None)
Quarter: 2004Q4

REPORT INFORMATION
  Report Type: 
  Country: None (occurrence: None)
  Receive Date: 20041217
  Receipt Date: 20040806
  Transmission Date: 20050328
  Serious: No
  Sender: FDA-Public Use
  Company Number: 2004-BP-06601BP

PATIENT
  Age: 67 Year
  Sex: Female

DRUGS (3)
  1. SPIRIVA [Suspect]
     Indication: ASTHMA
     Dosage: 18 MCG (18 MCG, 1 CAP INH OD), IH
     Route: 055
     Dates: start: 20040804, end: 20040804
  2. MODURETIC 5-50 [Concomitant]
  3. SYNTHROID [Concomitant]

REACTIONS (5)
  - DYSSTASIA [None]
  - HYPERHIDROSIS [None]
  - NAUSEA [None]
  - SWELLING FACE [None]
  - VERTIGO [None]
